FAERS Safety Report 4757416-3 (Version None)
Quarter: 2005Q3

REPORT INFORMATION
  Report Type: 
  Country: None (occurrence: None)
  Receive Date: 20050831
  Receipt Date: 20050803
  Transmission Date: 20060218
  Serious: Yes (Hospitalization)
  Sender: FDA-Public Use
  Company Number: PHBS2005JP11404

PATIENT
  Age: 62 Year
  Sex: Male

DRUGS (4)
  1. DIOVAN [Suspect]
     Indication: HYPERTENSION
     Dosage: 80 MG/ DAY
     Route: 048
     Dates: start: 20050614, end: 20050721
  2. ADALAT [Suspect]
     Indication: HYPERTENSION
     Dosage: 20 MG/DAY
     Route: 048
     Dates: start: 20050614, end: 20050721
  3. ZANTAC [Concomitant]
     Dosage: UNK, UNK
     Route: 048
  4. SELBEX [Concomitant]
     Dosage: UNK, UNK
     Route: 048
     Dates: end: 20050721

REACTIONS (5)
  - ALANINE AMINOTRANSFERASE INCREASED [None]
  - ASPARTATE AMINOTRANSFERASE INCREASED [None]
  - BLOOD LACTATE DEHYDROGENASE INCREASED [None]
  - HYPOTHYROIDISM [None]
  - LIVER DISORDER [None]
